FAERS Safety Report 7161779-1 (Version None)
Quarter: 2010Q4

REPORT INFORMATION
  Report Type: 
  Country: None (occurrence: None)
  Receive Date: 20101215
  Receipt Date: 20101206
  Transmission Date: 20110411
  Serious: Yes (Other)
  Sender: FDA-Public Use
  Company Number: PHHO2010SE11054

PATIENT
  Sex: Male

DRUGS (7)
  1. NEORAL [Suspect]
     Indication: RENAL TRANSPLANT
     Dosage: 275 MG, QD
     Route: 048
     Dates: start: 20061019
  2. CELLCEPT [Suspect]
     Indication: RENAL TRANSPLANT
     Dosage: UNK
     Route: 048
     Dates: start: 20061018
  3. METOPROLOL [Concomitant]
  4. FELODIPINE [Concomitant]
  5. DOXAZOSIN [Concomitant]
  6. LIPITOR [Concomitant]
  7. GLYBURIDE [Concomitant]

REACTIONS (2)
  - BASAL CELL CARCINOMA [None]
  - SKIN NEOPLASM EXCISION [None]
